FAERS Safety Report 4809105-4 (Version None)
Quarter: 2005Q4

REPORT INFORMATION
  Report Type: 
  Country: None (occurrence: None)
  Receive Date: 20051025
  Receipt Date: 20051005
  Transmission Date: 20060501
  Serious: Yes (Life-Threatening, Hospitalization)
  Sender: FDA-Public Use
  Company Number: AU-BRISTOL-MYERS SQUIBB COMPANY-13134630

PATIENT
  Age: 56 Year
  Sex: Male
  Weight: 73 kg

DRUGS (6)
  1. EFAVIRENZ [Suspect]
     Indication: HIV INFECTION
     Route: 048
     Dates: start: 20050906, end: 20050923
  2. COMBIVIR [Concomitant]
     Route: 048
     Dates: start: 20050906, end: 20050923
  3. IRON [Concomitant]
     Route: 048
     Dates: start: 20050712
  4. IBUPROFEN [Concomitant]
     Route: 048
     Dates: start: 20050914, end: 20050915
  5. VALTREX [Concomitant]
     Route: 048
     Dates: start: 20050916, end: 20050917
  6. CALAMINE [Concomitant]
     Route: 061
     Dates: start: 20050916, end: 20050917

REACTIONS (1)
  - MYOCARDIAL INFARCTION [None]
